FAERS Safety Report 17586801 (Version 1)
Quarter: 2020Q1

REPORT INFORMATION
  Report Type: Spontaneous
  Country: CN (occurrence: CN)
  Receive Date: 20200326
  Receipt Date: 20200326
  Transmission Date: 20200409
  Serious: Yes (Hospitalization)
  Sender: FDA-Public Use
  Company Number: CN-BAXTER-2020BAX006646

PATIENT
  Age: 8 Year
  Sex: Male

DRUGS (4)
  1. HOLOXAN [Suspect]
     Active Substance: IFOSFAMIDE
     Indication: OSTEOSARCOMA
     Dosage: FIRST TO FIFTH CHEMOTHERAPY; IFOSFAMIDE FOR INJECTION + NORMAL SALINE (NS)
     Route: 041
  2. HOLOXAN [Suspect]
     Active Substance: IFOSFAMIDE
     Dosage: SIXTH CHEMOTHERAPY; IFOSFAMIDE FOR INJECTION 3.3G + NS 500ML
     Route: 041
     Dates: start: 20191209, end: 20191211
  3. 0.9% SODIUM CHLORIDE INJECTION [Suspect]
     Active Substance: SODIUM CHLORIDE
     Indication: MEDICATION DILUTION
     Dosage: FIRST TO FIFTH CHEMOTHERAPY; IFOSFAMIDE FOR INJECTION + NS
     Route: 041
  4. 0.9% SODIUM CHLORIDE INJECTION [Suspect]
     Active Substance: SODIUM CHLORIDE
     Dosage: SIXTH CHEMOTHERAPY; IFOSFAMIDE FOR INJECTION 3.3G + NS 500ML
     Route: 041
     Dates: start: 20191209, end: 20191211

REACTIONS (1)
  - Bone marrow failure [Recovering/Resolving]

NARRATIVE: CASE EVENT DATE: 20191214
